FAERS Safety Report 8248810-7 (Version None)
Quarter: 2012Q2

REPORT INFORMATION
  Report Type: 
  Country: None (occurrence: None)
  Receive Date: 20120401
  Receipt Date: 20120323
  Transmission Date: 20120825
  Serious: Yes (Other)
  Sender: FDA-Public Use
  Company Number: PHEH2012US004040

PATIENT
  Sex: Female

DRUGS (6)
  1. NEXIUM [Concomitant]
     Dosage: 40 MG, QD
  2. LIPITOR [Concomitant]
     Dosage: UNK UKN, QD
  3. TRIAMTERENE AND HYDROCHLOROTHIAZIDE [Suspect]
     Dosage: 50 MG, QD
     Dates: start: 19890101
  4. MUSCLE RELAXANTS [Concomitant]
     Dosage: 2XDAY AS NEEDED
  5. EXFORGE [Suspect]
     Dosage: 320 MG, QD
  6. LYRICA [Concomitant]
     Dosage: 50 MG, BID

REACTIONS (4)
  - DIZZINESS [None]
  - FIBROMYALGIA [None]
  - GLUCOSE TOLERANCE IMPAIRED [None]
  - HYPERHIDROSIS [None]
